FAERS Safety Report 13457348 (Version 1)
Quarter: 2017Q2

REPORT INFORMATION
  Report Type: Spontaneous
  Country: US (occurrence: US)
  Receive Date: 20170419
  Receipt Date: 20170419
  Transmission Date: 20170830
  Serious: Yes (Hospitalization, Other)
  Sender: FDA-Public Use
  Company Number: US-ROCHE-1920867

PATIENT
  Age: 52 Year
  Sex: Female
  Weight: 70.82 kg

DRUGS (11)
  1. RITUXAN [Suspect]
     Active Substance: RITUXIMAB
     Indication: IRON DEFICIENCY
  2. RITUXAN [Suspect]
     Active Substance: RITUXIMAB
     Indication: PARAESTHESIA
  3. RITUXAN [Suspect]
     Active Substance: RITUXIMAB
     Indication: NEUTROPENIA
  4. RITUXAN [Suspect]
     Active Substance: RITUXIMAB
     Indication: HYPOCHROMIC ANAEMIA
  5. RITUXAN [Suspect]
     Active Substance: RITUXIMAB
     Indication: CUTANEOUS VASCULITIS
  6. RITUXAN [Suspect]
     Active Substance: RITUXIMAB
     Indication: SKIN LESION
  7. RITUXAN [Suspect]
     Active Substance: RITUXIMAB
     Indication: SKIN DISCOLOURATION
  8. RITUXAN [Suspect]
     Active Substance: RITUXIMAB
     Indication: HYPOAESTHESIA
  9. RITUXAN [Suspect]
     Active Substance: RITUXIMAB
     Indication: HEMIPARESIS
  10. RITUXAN [Suspect]
     Active Substance: RITUXIMAB
     Indication: NEUROPATHY PERIPHERAL
  11. RITUXAN [Suspect]
     Active Substance: RITUXIMAB
     Indication: RHEUMATOID ARTHRITIS
     Route: 065
     Dates: start: 201607

REACTIONS (13)
  - Headache [Unknown]
  - Transient ischaemic attack [Unknown]
  - Alopecia [Unknown]
  - Nodule [Unknown]
  - Visual impairment [Unknown]
  - Scab [Unknown]
  - Haemorrhoidal haemorrhage [Unknown]
  - Cluster headache [Unknown]
  - Speech disorder [Unknown]
  - Stomatitis [Unknown]
  - Blood pressure increased [Unknown]
  - Haemorrhoids [Unknown]
  - Vomiting [Unknown]

NARRATIVE: CASE EVENT DATE: 201607
